FAERS Safety Report 24019488 (Version 8)
Quarter: 2024Q4

REPORT INFORMATION
  Report Type: Spontaneous
  Country: EC (occurrence: EC)
  Receive Date: 20240627
  Receipt Date: 20241216
  Transmission Date: 20250115
  Serious: Yes (Disabling, Other)
  Sender: ROCHE
  Company Number: EC-ROCHE-10000007637

PATIENT

DRUGS (2)
  1. AVASTIN [Suspect]
     Active Substance: BEVACIZUMAB
     Indication: Retinal disorder
     Dosage: DOSE AND FREQUENCY WERE NOT REPORTED?STRENGTH: 25 MG/ML
     Route: 050
  2. AVASTIN [Suspect]
     Active Substance: BEVACIZUMAB
     Route: 050

REACTIONS (6)
  - Endophthalmitis [Unknown]
  - Product counterfeit [Unknown]
  - Off label use [Unknown]
  - Blindness [Unknown]
  - Pain [Unknown]
  - Product contamination [Unknown]

NARRATIVE: CASE EVENT DATE: 20240501
